FAERS Safety Report 8955581 (Version 1)
Quarter: 2012Q4

REPORT INFORMATION
  Report Type: 
  Country: IT (occurrence: IT)
  Receive Date: 20121207
  Receipt Date: 20121207
  Transmission Date: 20130627
  Serious: Yes (Other)
  Sender: FDA-Public Use
  Company Number: IT-ROCHE-1163081

PATIENT

DRUGS (3)
  1. RITUXIMAB [Suspect]
     Indication: NON-HODGKIN^S LYMPHOMA
     Dosage: day 1 for 6 cycles
     Route: 042
  2. MITOXANTRONE [Suspect]
     Indication: NON-HODGKIN^S LYMPHOMA
     Dosage: day 2 for 6 cycles
     Route: 042
  3. FLUDARABINE [Suspect]
     Indication: NON-HODGKIN^S LYMPHOMA
     Dosage: days 2, 3 and 4 for 6 cycles
     Route: 042

REACTIONS (5)
  - Haematotoxicity [Unknown]
  - Neurotoxicity [Unknown]
  - Hepatotoxicity [Unknown]
  - Myelodysplastic syndrome [Unknown]
  - Acute lymphocytic leukaemia [Unknown]
